FAERS Safety Report 16531504 (Version 1)
Quarter: 2019Q3

REPORT INFORMATION
  Report Type: Spontaneous
  Country: US (occurrence: US)
  Receive Date: 20190705
  Receipt Date: 20190705
  Transmission Date: 20191004
  Serious: No
  Sender: FDA-Public Use
  Company Number: US-TEVA-2019-US-1069640

PATIENT
  Sex: Female

DRUGS (2)
  1. LOVENOX [Concomitant]
     Active Substance: ENOXAPARIN SODIUM
  2. ENOXAPARIN SODIUM INJECTION [Suspect]
     Active Substance: ENOXAPARIN SODIUM
     Indication: DEEP VEIN THROMBOSIS
     Dosage: DOSE STRENGTH: 120 MG/0.8 ML
     Route: 065
     Dates: start: 201901

REACTIONS (5)
  - Pruritus [Unknown]
  - Anger [Unknown]
  - Irritability [Unknown]
  - Stress [Unknown]
  - Urticaria [Unknown]

NARRATIVE: CASE EVENT DATE: 2019
